FAERS Safety Report 24721286 (Version 2)
Quarter: 2025Q1

REPORT INFORMATION
  Report Type: Report from Study
  Country: JP (occurrence: JP)
  Receive Date: 20241211
  Receipt Date: 20250324
  Transmission Date: 20250409
  Serious: Yes (Death, Life-Threatening, Other)
  Sender: ASTELLAS
  Company Number: JP-ASTELLAS-2024-AER-023523

PATIENT
  Age: 55 Year
  Sex: Male

DRUGS (17)
  1. GILTERITINIB [Suspect]
     Active Substance: GILTERITINIB
     Indication: Acute myelomonocytic leukaemia
     Route: 065
  2. GILTERITINIB [Suspect]
     Active Substance: GILTERITINIB
     Route: 065
  3. GILTERITINIB [Suspect]
     Active Substance: GILTERITINIB
     Route: 065
  4. GILTERITINIB [Suspect]
     Active Substance: GILTERITINIB
     Route: 065
  5. GILTERITINIB [Suspect]
     Active Substance: GILTERITINIB
     Route: 065
  6. GILTERITINIB [Suspect]
     Active Substance: GILTERITINIB
     Route: 065
  7. IDARUBICIN [Concomitant]
     Active Substance: IDARUBICIN
     Indication: Acute myelomonocytic leukaemia
     Route: 065
  8. CYTARABINE [Concomitant]
     Active Substance: CYTARABINE
     Indication: Acute myelomonocytic leukaemia
     Route: 065
  9. CYTARABINE [Concomitant]
     Active Substance: CYTARABINE
     Route: 065
  10. CYTARABINE [Concomitant]
     Active Substance: CYTARABINE
     Route: 065
  11. CYTARABINE [Concomitant]
     Active Substance: CYTARABINE
     Route: 065
  12. CYTARABINE [Concomitant]
     Active Substance: CYTARABINE
     Route: 065
  13. METHOTREXATE [Concomitant]
     Active Substance: METHOTREXATE
     Indication: Acute myelomonocytic leukaemia
     Route: 065
  14. ACLARUBICIN [Concomitant]
     Active Substance: ACLARUBICIN
     Indication: Acute myelomonocytic leukaemia
     Route: 065
  15. FLUDARABINE [Concomitant]
     Active Substance: FLUDARABINE PHOSPHATE
     Indication: Bone marrow conditioning regimen
     Route: 065
  16. MELPHALAN [Concomitant]
     Active Substance: MELPHALAN
     Indication: Bone marrow conditioning regimen
     Route: 065
  17. DAUNORUBICIN [Concomitant]
     Active Substance: DAUNORUBICIN
     Indication: Acute myelomonocytic leukaemia
     Route: 065

REACTIONS (10)
  - Sepsis [Fatal]
  - Pneumocystis jirovecii pneumonia [Unknown]
  - Thrombocytopenia [Unknown]
  - Myocarditis [Unknown]
  - Myocarditis [Unknown]
  - Neutropenia [Unknown]
  - Cardiac failure [Unknown]
  - Stomatitis [Unknown]
  - Renal disorder [Unknown]
  - Infection [Unknown]
